FAERS Safety Report 13633749 (Version 1)
Quarter: 2017Q2

REPORT INFORMATION
  Report Type: Spontaneous
  Country: US (occurrence: US)
  Receive Date: 20170531
  Receipt Date: 20170531
  Transmission Date: 20170830
  Serious: No
  Sender: FDA-Public Use
  Company Number: US-ASTELLAS-1569549

PATIENT
  Age: 74 Year
  Sex: Female

DRUGS (11)
  1. TARCEVA [Suspect]
     Active Substance: ERLOTINIB HYDROCHLORIDE
     Indication: LUNG NEOPLASM MALIGNANT
     Route: 048
     Dates: start: 20150406
  2. NEXIUM [Concomitant]
     Active Substance: ESOMEPRAZOLE MAGNESIUM
  3. CRESTOR [Concomitant]
     Active Substance: ROSUVASTATIN CALCIUM
  4. AMLODIPINE BESYLATE. [Concomitant]
     Active Substance: AMLODIPINE BESYLATE
  5. CAPTOPRIL. [Concomitant]
     Active Substance: CAPTOPRIL
  6. GABAPENTIN. [Concomitant]
     Active Substance: GABAPENTIN
  7. FUROSEMIDE. [Concomitant]
     Active Substance: FUROSEMIDE
  8. ZOLPIDEM TARTRATE. [Concomitant]
     Active Substance: ZOLPIDEM TARTRATE
  9. HYDROCHLOROTHIAZIDE. [Concomitant]
     Active Substance: HYDROCHLOROTHIAZIDE
  10. TARCEVA [Suspect]
     Active Substance: ERLOTINIB HYDROCHLORIDE
     Route: 048
     Dates: start: 20150406
  11. ALLOPURINOL. [Concomitant]
     Active Substance: ALLOPURINOL

REACTIONS (6)
  - Nail disorder [Not Recovered/Not Resolved]
  - Drug ineffective [Unknown]
  - Onychalgia [Not Recovered/Not Resolved]
  - Rash [Unknown]
  - Metastatic neoplasm [Unknown]
  - Rash [Unknown]

NARRATIVE: CASE EVENT DATE: 20150423
